FAERS Safety Report 11341713 (Version 1)
Quarter: 2015Q3

REPORT INFORMATION
  Report Type: Spontaneous
  Country: US (occurrence: None)
  Receive Date: 20150803
  Receipt Date: 20150803
  Transmission Date: 20151125
  Serious: No
  Sender: FDA-Public Use
  Company Number: None

PATIENT
  Age: 37 Year
  Sex: Male
  Weight: 74.84 kg

DRUGS (4)
  1. PREP [Concomitant]
  2. IBUPROFEN. [Concomitant]
     Active Substance: IBUPROFEN
  3. PEPTO BISMAL [Concomitant]
  4. CIALIS [Suspect]
     Active Substance: TADALAFIL
     Indication: ERECTILE DYSFUNCTION
     Route: 048
     Dates: start: 20150802, end: 20150802

REACTIONS (5)
  - Hypoaesthesia [None]
  - Mydriasis [None]
  - Hyperhidrosis [None]
  - Hyperventilation [None]
  - Dizziness [None]

NARRATIVE: CASE EVENT DATE: 20150802
